FAERS Safety Report 7169758-5 (Version None)
Quarter: 2010Q4

REPORT INFORMATION
  Report Type: 
  Country: None (occurrence: None)
  Receive Date: 20101217
  Receipt Date: 20100201
  Transmission Date: 20110411
  Serious: No
  Sender: FDA-Public Use
  Company Number: A0842336A

PATIENT
  Age: 55 Year
  Sex: Male

DRUGS (6)
  1. SORIATANE [Suspect]
     Indication: PSORIASIS
     Dosage: 25MG CYCLIC
     Route: 048
     Dates: end: 20100101
  2. ZANTAC [Concomitant]
  3. SIMVASTATIN [Concomitant]
  4. DIOVAN [Concomitant]
  5. DOXAZOSIN [Concomitant]
  6. CLONAZEPAM [Concomitant]

REACTIONS (1)
  - PRURITUS GENERALISED [None]
